FAERS Safety Report 5288258-0 (Version None)
Quarter: 2007Q2

REPORT INFORMATION
  Report Type: 
  Country: None (occurrence: None)
  Receive Date: 20070405
  Receipt Date: 20070328
  Transmission Date: 20071010
  Serious: Yes (Other)
  Sender: FDA-Public Use
  Company Number: FR-ROCHE-461692

PATIENT
  Age: 19 Year
  Sex: Female

DRUGS (2)
  1. ROACCUTANE [Suspect]
     Indication: DRUG USE FOR UNKNOWN INDICATION
     Route: 048
     Dates: end: 20060625
  2. ROACCUTANE [Suspect]
     Dosage: TAKEN BY MISTAKE.
     Route: 048
     Dates: start: 20060725, end: 20060725

REACTIONS (2)
  - ABORTION INDUCED [None]
  - PREGNANCY [None]
